FAERS Safety Report 16469318 (Version 1)
Quarter: 2019Q3

REPORT INFORMATION
  Report Type: Spontaneous
  Country: US (occurrence: US)
  Receive Date: 20190621
  Receipt Date: 20190621
  Transmission Date: 20191004
  Serious: No
  Sender: FDA-Public Use
  Company Number: None

PATIENT
  Age: 54 Year
  Sex: Female
  Weight: 72.9 kg

DRUGS (1)
  1. REPATHA [Suspect]
     Active Substance: EVOLOCUMAB
     Indication: BLOOD CHOLESTEROL INCREASED
     Dosage: ?          QUANTITY:1 INJECTION(S);OTHER FREQUENCY:TWICE MONTHLY;?
     Route: 058

REACTIONS (9)
  - Hypertension [None]
  - Vision blurred [None]
  - Blood glucose increased [None]
  - Influenza like illness [None]
  - Back pain [None]
  - Muscle spasms [None]
  - Amnesia [None]
  - Pain in extremity [None]
  - Chest pain [None]

NARRATIVE: CASE EVENT DATE: 20190516
